FAERS Safety Report 19685782 (Version 5)
Quarter: 2022Q1

REPORT INFORMATION
  Report Type: Report from Study
  Country: CO (occurrence: CO)
  Receive Date: 20210811
  Receipt Date: 20220118
  Transmission Date: 20220423
  Serious: Yes (Hospitalization, Other)
  Sender: FDA-Public Use
  Company Number: CO-AMGEN-COLSL2020181963

PATIENT
  Age: 48 Year
  Sex: Female

DRUGS (3)
  1. VECTIBIX [Suspect]
     Active Substance: PANITUMUMAB
     Indication: Colorectal cancer metastatic
     Dosage: 372 MILLIGRAM, Q2WK
     Route: 042
     Dates: start: 20201005
  2. VECTIBIX [Suspect]
     Active Substance: PANITUMUMAB
     Dosage: 325 MILLIGRAM, Q2WK (BIWEEKLY)
     Route: 042
  3. VECTIBIX [Suspect]
     Active Substance: PANITUMUMAB
     Dosage: 372 MILLIGRAM, Q2WK (BIWEEKLY)
     Route: 042
     Dates: start: 2021, end: 20211222

REACTIONS (22)
  - Syncope [Not Recovered/Not Resolved]
  - Haematemesis [Recovering/Resolving]
  - Abdominal pain [Recovered/Resolved]
  - Stoma site haemorrhage [Recovering/Resolving]
  - Skin laceration [Not Recovered/Not Resolved]
  - Swelling face [Recovering/Resolving]
  - Eye inflammation [Not Recovered/Not Resolved]
  - Eye injury [Not Recovered/Not Resolved]
  - Dermatitis [Not Recovered/Not Resolved]
  - Dizziness [Recovered/Resolved]
  - Dry skin [Not Recovered/Not Resolved]
  - Rash [Recovering/Resolving]
  - Decreased appetite [Recovering/Resolving]
  - Eye irritation [Not Recovered/Not Resolved]
  - Ocular hyperaemia [Unknown]
  - Stomatitis [Recovering/Resolving]
  - Mucosal inflammation [Recovering/Resolving]
  - Influenza [Recovering/Resolving]
  - Spinal pain [Recovering/Resolving]
  - Vulvovaginal mycotic infection [Not Recovered/Not Resolved]
  - Decreased immune responsiveness [Not Recovered/Not Resolved]
  - Dandruff [Not Recovered/Not Resolved]

NARRATIVE: CASE EVENT DATE: 20201008
